FAERS Safety Report 4667127-0 (Version None)
Quarter: 2005Q2

REPORT INFORMATION
  Report Type: 
  Country: None (occurrence: None)
  Receive Date: 20050520
  Receipt Date: 20050218
  Transmission Date: 20051028
  Serious: Yes (Hospitalization)
  Sender: FDA-Public Use
  Company Number: PHBS2005NO02672

PATIENT
  Age: 63 Year
  Sex: Female

DRUGS (6)
  1. ZOMETA [Suspect]
     Indication: METASTASES TO BONE
     Dosage: 4 MG, QMO
     Route: 042
     Dates: start: 20020401, end: 20040101
  2. CHEMOTHERAPEUTICS,OTHER [Concomitant]
  3. ADRIAMYCIN PFS [Concomitant]
     Dates: start: 20020401, end: 20041201
  4. TAXOL [Concomitant]
     Route: 065
     Dates: start: 20030101, end: 20040701
  5. HERCEPTIN [Concomitant]
     Route: 065
     Dates: start: 20030101, end: 20040701
  6. HORMONES [Concomitant]
     Route: 065

REACTIONS (5)
  - INFECTION [None]
  - MASTICATION DISORDER [None]
  - OSTEOMYELITIS [None]
  - OSTEONECROSIS [None]
  - PAIN [None]
